FAERS Safety Report 4331268-8 (Version None)
Quarter: 2004Q1

REPORT INFORMATION
  Report Type: 
  Country: None (occurrence: None)
  Receive Date: 20040331
  Receipt Date: 20040319
  Transmission Date: 20041129
  Serious: Yes (Hospitalization, Other)
  Sender: FDA-Public Use
  Company Number: 2004-01-0629

PATIENT
  Age: 54 Year
  Sex: Male
  Weight: 84 kg

DRUGS (10)
  1. PEG-INTRON [Suspect]
     Indication: HEPATITIS C
     Dosage: 150 MCG QWK SUBCUTANEOUS
     Route: 058
     Dates: start: 20030728, end: 20031124
  2. RIBAVIRIN [Suspect]
     Indication: HEPATITIS C
     Dosage: 1000 MG QD ORAL
     Route: 048
     Dates: start: 20030728, end: 20031127
  3. AMTRIPTYLINE [Suspect]
     Indication: NEURALGIA
     Route: 048
     Dates: start: 20031201
  4. PREDNISONE [Suspect]
     Indication: MORPHOEA
     Dosage: 60 MG QD ORAL
     Route: 048
     Dates: start: 20031212
  5. ENALAPRIL MALEATE [Concomitant]
  6. OMEPRAZOLE [Concomitant]
  7. DAPSONE [Concomitant]
  8. CLOFAZIMINE [Concomitant]
  9. CALCIUM CARBONATE SYRUP [Concomitant]
  10. POTASSIUM CHLORIDE [Concomitant]

REACTIONS (6)
  - ARTHRALGIA [None]
  - HALLUCINATIONS, MIXED [None]
  - LEPROSY [None]
  - MENTAL DISORDER [None]
  - MORPHOEA [None]
  - NEURALGIA [None]
